FAERS Safety Report 4906167-0 (Version None)
Quarter: 2006Q1

REPORT INFORMATION
  Report Type: 
  Country: None (occurrence: None)
  Receive Date: 20060207
  Receipt Date: 20060207
  Transmission Date: 20060701
  Serious: No
  Sender: FDA-Public Use
  Company Number: None

PATIENT
  Sex: Male
  Weight: 230.8809 kg

DRUGS (1)
  1. SKELAXIN [Suspect]
     Indication: PAIN
     Dosage: SEE IMAGE

REACTIONS (9)
  - DEPRESSION [None]
  - DRUG TOXICITY [None]
  - DYSPNOEA [None]
  - HALLUCINATION [None]
  - INTERVERTEBRAL DISC DEGENERATION [None]
  - OSTEOARTHRITIS [None]
  - PSYCHOTIC DISORDER [None]
  - RESPIRATORY DISORDER [None]
  - WALKING AID USER [None]
